FAERS Safety Report 7704822-0 (Version None)
Quarter: 2011Q3

REPORT INFORMATION
  Report Type: 
  Country: None (occurrence: None)
  Receive Date: 20110823
  Receipt Date: 20110817
  Transmission Date: 20111222
  Serious: Yes (Hospitalization)
  Sender: FDA-Public Use
  Company Number: JP-ABBOTT-11P-087-0847444-00

PATIENT
  Sex: Female
  Weight: 42 kg

DRUGS (6)
  1. HUMIRA [Suspect]
     Dates: start: 20101203, end: 20101203
  2. HUMIRA [Suspect]
     Dates: start: 20101217, end: 20110218
  3. ENTERAL NUTRITION [Concomitant]
     Indication: CROHN'S DISEASE
  4. HUMIRA [Suspect]
     Indication: CROHN'S DISEASE
     Route: 058
     Dates: start: 20101119, end: 20101119
  5. MESALAMINE [Concomitant]
     Indication: CROHN'S DISEASE
     Dosage: 4 GRAM DAILY
     Route: 048
  6. PREDNISOLONE [Concomitant]
     Indication: CROHN'S DISEASE
     Dosage: 15 MG DAILY
     Route: 048

REACTIONS (1)
  - HYPOALBUMINAEMIA [None]
